FAERS Safety Report 16228312 (Version 1)
Quarter: 2019Q2

REPORT INFORMATION
  Report Type: Spontaneous
  Country: US (occurrence: US)
  Receive Date: 20190318
  Receipt Date: 20190318
  Transmission Date: 20190711
  Serious: No
  Sender: FDA-Public Use
  Company Number: None

PATIENT
  Age: 89 Year
  Sex: Male
  Weight: 80 kg

DRUGS (1)
  1. PREGABALIN. [Suspect]
     Active Substance: PREGABALIN
     Indication: PAIN
     Route: 048
     Dates: start: 20190107, end: 20190115

REACTIONS (5)
  - Sedation [None]
  - Therapy cessation [None]
  - Feeling abnormal [None]
  - Somnolence [None]
  - Dizziness [None]

NARRATIVE: CASE EVENT DATE: 20190111
